FAERS Safety Report 13129994 (Version 1)
Quarter: 2017Q1

REPORT INFORMATION
  Report Type: Report from Study
  Country: US (occurrence: US)
  Receive Date: 20170119
  Receipt Date: 20170119
  Transmission Date: 20170428
  Serious: Yes (Hospitalization, Other)
  Sender: FDA-Public Use
  Company Number: US-BRISTOL-MYERS SQUIBB COMPANY-BMS-2016-113386

PATIENT
  Age: 63 Year
  Sex: Female
  Weight: 81.64 kg

DRUGS (1)
  1. ABATACEPT [Suspect]
     Active Substance: ABATACEPT
     Indication: RHEUMATOID ARTHRITIS
     Dosage: UNK
     Route: 058
     Dates: start: 20161216, end: 20170101

REACTIONS (2)
  - Pneumonia [Unknown]
  - Limb operation [Unknown]

NARRATIVE: CASE EVENT DATE: 20170105
